FAERS Safety Report 20773587 (Version 2)
Quarter: 2022Q3

REPORT INFORMATION
  Report Type: Report from Study
  Country: CO (occurrence: CO)
  Receive Date: 20220502
  Receipt Date: 20220720
  Transmission Date: 20221027
  Serious: Yes (Other)
  Sender: FDA-Public Use
  Company Number: CO-NOVARTISPH-NVSC2021CO178921

PATIENT
  Age: 66 Year
  Sex: Female
  Weight: 90 kg

DRUGS (11)
  1. XOLAIR [Suspect]
     Active Substance: OMALIZUMAB
     Indication: Asthma
     Dosage: 450 MG, QMO
     Route: 058
     Dates: start: 2012
  2. XOLAIR [Suspect]
     Active Substance: OMALIZUMAB
     Dosage: 450 MG
     Route: 058
     Dates: start: 2019
  3. XOLAIR [Suspect]
     Active Substance: OMALIZUMAB
     Dosage: 450 MG, QMO
     Route: 058
     Dates: end: 202203
  4. XOLAIR [Suspect]
     Active Substance: OMALIZUMAB
     Dosage: 450 MG (EVERY 15 DAYS)
     Route: 058
     Dates: start: 202203
  5. XOLAIR [Suspect]
     Active Substance: OMALIZUMAB
     Dosage: 900 MG, QMO
     Route: 058
  6. VALSARTAN [Suspect]
     Active Substance: VALSARTAN
     Indication: Hypertension
     Dosage: 160 MG, Q24H (FROM 12 YEARS)
     Route: 048
  7. METFORMIN [Suspect]
     Active Substance: METFORMIN HYDROCHLORIDE
     Indication: Diabetes mellitus
     Route: 065
  8. INSULIN NOS [Concomitant]
     Active Substance: INSULIN NOS
     Indication: Diabetes mellitus
     Dosage: UNK, Q24H (STARTED 7 YEARS AGO)
     Route: 058
  9. HYDROCHLOROTHIAZIDE [Concomitant]
     Active Substance: HYDROCHLOROTHIAZIDE
     Indication: Diuretic therapy
     Dosage: UNK, QD (STARTED 30 YEARS AGO)
     Route: 048
  10. CARVEDILOL [Concomitant]
     Active Substance: CARVEDILOL
     Indication: Hypertension
     Dosage: UNK, QD (STARTED12 YEARS)
     Route: 048
  11. AMLODIPINE [Concomitant]
     Active Substance: AMLODIPINE BESYLATE
     Indication: Hypertension
     Dosage: 10 MG, Q24H (FROM 12 YEARS)
     Route: 048

REACTIONS (12)
  - Asthmatic crisis [Unknown]
  - Spinal deformity [Unknown]
  - Asphyxia [Unknown]
  - Thrombosis [Unknown]
  - Choking [Unknown]
  - Painful respiration [Unknown]
  - Gait inability [Unknown]
  - Weight increased [Unknown]
  - Memory impairment [Unknown]
  - Blood immunoglobulin E increased [Unknown]
  - COVID-19 [Unknown]
  - Incorrect dose administered [Unknown]

NARRATIVE: CASE EVENT DATE: 20210701
